FAERS Safety Report 4468049-0 (Version None)
Quarter: 2004Q4

REPORT INFORMATION
  Report Type: 
  Country: None (occurrence: None)
  Receive Date: 20041001
  Receipt Date: 20040923
  Transmission Date: 20050328
  Serious: Yes (Death, Hospitalization)
  Sender: FDA-Public Use
  Company Number: 2004-120548-NL

PATIENT
  Age: 73 Year
  Sex: Male

DRUGS (9)
  1. DEXAMETHASONE [Suspect]
     Dosage: 40 MG ORAL
     Route: 048
     Dates: start: 20020414, end: 20020503
  2. GENASENSE [Suspect]
     Indication: MULTIPLE MYELOMA
     Dosage: 7 MG/KG INTRAVENOUS (NOS)
     Route: 042
     Dates: start: 20020410, end: 20020505
  3. DOCUSATE [Concomitant]
  4. SENNA [Concomitant]
  5. LACTULOSE [Suspect]
  6. MORPHINE SULFATE [Concomitant]
  7. VITAMIN B COMPLEX CAP [Concomitant]
  8. ALLOPURINOL [Concomitant]
  9. PAMIDRONATE DISODIUM [Concomitant]

REACTIONS (9)
  - ASPIRATION [None]
  - BRADYCARDIA [None]
  - COGNITIVE DISORDER [None]
  - COMA [None]
  - CONFUSIONAL STATE [None]
  - CONVULSION [None]
  - DRUG TOXICITY [None]
  - HAEMORRHAGE INTRACRANIAL [None]
  - PUPILLARY REFLEX IMPAIRED [None]
